FAERS Safety Report 19617822 (Version 1)
Quarter: 2021Q3

REPORT INFORMATION
  Report Type: Spontaneous
  Country: US (occurrence: US)
  Receive Date: 20210727
  Receipt Date: 20210727
  Transmission Date: 20211014
  Serious: Yes (Other)
  Sender: FDA-Public Use
  Company Number: US-SA-2021SA243989

PATIENT
  Sex: Female

DRUGS (1)
  1. ALLEGRA D?12 HOUR [Suspect]
     Active Substance: FEXOFENADINE HYDROCHLORIDE\PSEUDOEPHEDRINE HYDROCHLORIDE
     Indication: HYPERSENSITIVITY
     Dosage: DRUG INTERVAL DOSAGE : 12 HOURS DRUG TREATMENT DURATION: UTR
     Route: 065

REACTIONS (3)
  - Lung cancer metastatic [Unknown]
  - Lower limb fracture [Unknown]
  - Product residue present [Unknown]
